FAERS Safety Report 16912734 (Version 1)
Quarter: 2019Q4

REPORT INFORMATION
  Report Type: Spontaneous
  Country: CA (occurrence: CA)
  Receive Date: 20191014
  Receipt Date: 20191014
  Transmission Date: 20200122
  Serious: Yes (Other)
  Sender: FDA-Public Use
  Company Number: CA-TEVA-2019-CA-1119671

PATIENT
  Age: 80 Year
  Sex: Female

DRUGS (11)
  1. SIMVASTATIN. [Concomitant]
     Active Substance: SIMVASTATIN
     Route: 048
  2. ACETAMINOPHEN. [Concomitant]
     Active Substance: ACETAMINOPHEN
     Indication: HEADACHE
     Route: 048
  3. CORTEF [Concomitant]
     Active Substance: HYDROCORTISONE
     Route: 048
  4. ASPIRIN[ACETYLSALICYLIC ACID] [Concomitant]
     Indication: CORONARY ARTERY THROMBOSIS
     Dosage: 80 MILLIGRAM DAILY;
     Route: 048
  5. CALCIUM CARBONATE/ERGOCALCIFEROL [Concomitant]
     Route: 048
  6. CORTEF [Concomitant]
     Active Substance: HYDROCORTISONE
     Route: 048
  7. INSULIN [Suspect]
     Active Substance: INSULIN NOS
     Indication: PRODUCT USED FOR UNKNOWN INDICATION
     Route: 065
  8. CYANOCOBALAMIN. [Concomitant]
     Active Substance: CYANOCOBALAMIN
     Route: 048
  9. SYNTHROID [Concomitant]
     Active Substance: LEVOTHYROXINE SODIUM
     Route: 048
  10. AMLODIPINE BESILATE [Suspect]
     Active Substance: AMLODIPINE BESYLATE
     Indication: BLOOD PRESSURE ABNORMAL
     Route: 048
  11. CORTEF [Concomitant]
     Active Substance: HYDROCORTISONE
     Dosage: 10 MILLIGRAM DAILY;
     Route: 048

REACTIONS (1)
  - Loss of consciousness [Unknown]
